FAERS Safety Report 13726790 (Version 6)
Quarter: 2018Q1

REPORT INFORMATION
  Report Type: Spontaneous
  Country: US (occurrence: US)
  Receive Date: 20170706
  Receipt Date: 20180110
  Transmission Date: 20180508
  Serious: No
  Sender: FDA-Public Use
  Company Number: US-PFIZER INC-2017292437

PATIENT
  Age: 80 Year
  Sex: Female
  Weight: 79 kg

DRUGS (8)
  1. IBRANCE [Suspect]
     Active Substance: PALBOCICLIB
     Indication: BREAST CANCER
     Dosage: 125 MG, CYCLIC (ONCE A DAY FOR 21 DAYS THEN 7 DAYS OFF)
     Route: 048
  2. IBRANCE [Suspect]
     Active Substance: PALBOCICLIB
     Dosage: 125 MG, CYCLIC (ONCE DAILY FOR 21 DAYS THEN OFF FOR 7 DAYS)
     Route: 048
     Dates: start: 201701
  3. VITAMIN D [Concomitant]
     Active Substance: CHOLECALCIFEROL
     Dosage: UNK
  4. IBRANCE [Suspect]
     Active Substance: PALBOCICLIB
     Dosage: 125 MG, CYCLIC  (21 DAYS WITH FOOD ONCE A DAY)
     Dates: start: 201701
  5. GABAPENTIN. [Concomitant]
     Active Substance: GABAPENTIN
     Indication: FACIAL NEURALGIA
     Dosage: 300 MG, AS NEEDED (4 TIMES DAILY)
  6. VITAMIN B [Concomitant]
     Active Substance: VITAMIN B
     Dosage: UNK
  7. VITAMIN C [Concomitant]
     Active Substance: ASCORBIC ACID
     Dosage: UNK
  8. LETROZOLE. [Concomitant]
     Active Substance: LETROZOLE
     Indication: BREAST CANCER
     Dosage: 2.5 MG, DAILY
     Route: 048
     Dates: start: 201701

REACTIONS (9)
  - Asthenia [Recovering/Resolving]
  - Alopecia [Unknown]
  - Haematoma [Recovering/Resolving]
  - Feeling abnormal [Recovering/Resolving]
  - Thinking abnormal [Recovering/Resolving]
  - Nail growth abnormal [Unknown]
  - Contusion [Not Recovered/Not Resolved]
  - Abnormal behaviour [Recovered/Resolved]
  - Slow response to stimuli [Not Recovered/Not Resolved]

NARRATIVE: CASE EVENT DATE: 201701
